FAERS Safety Report 23290012 (Version 1)
Quarter: 2023Q4

REPORT INFORMATION
  Report Type: Report from Study
  Country: JP (occurrence: JP)
  Receive Date: 20231212
  Receipt Date: 20231212
  Transmission Date: 20240110
  Serious: Yes (Other)
  Sender: FDA-Public Use
  Company Number: JP-ABBVIE-5417153

PATIENT
  Age: 52 Year
  Sex: Female
  Weight: 82 kg

DRUGS (5)
  1. RINVOQ [Suspect]
     Active Substance: UPADACITINIB
     Indication: Colitis ulcerative
     Dosage: FORM STRENGTH 15 MILLIGRAM?LAST ADMINISTRATION DOSE DATE: 2023
     Route: 048
     Dates: start: 20230829
  2. RINVOQ [Suspect]
     Active Substance: UPADACITINIB
     Indication: Colitis ulcerative
     Dosage: FORM STRENGTH 15 MILLIGRAM?LAST ADMIN DATE 2023
     Route: 048
     Dates: start: 20230731
  3. RINVOQ [Suspect]
     Active Substance: UPADACITINIB
     Indication: Colitis ulcerative
     Dosage: LAST ADMINISTRATION DOSE DATE: AUG 2023
     Route: 048
     Dates: start: 20230808
  4. RINVOQ [Suspect]
     Active Substance: UPADACITINIB
     Indication: Colitis ulcerative
     Route: 048
     Dates: start: 20230901, end: 20230914
  5. RINVOQ [Suspect]
     Active Substance: UPADACITINIB
     Indication: Colitis ulcerative
     Dosage: LAST ADMINISTRATION DOSE DATE: AUG 2023
     Route: 048
     Dates: start: 20230802

REACTIONS (4)
  - Cytomegalovirus infection [Recovered/Resolved]
  - Pyrexia [Recovered/Resolved]
  - Laboratory test abnormal [Unknown]
  - C-reactive protein increased [Unknown]

NARRATIVE: CASE EVENT DATE: 20230101
